FAERS Safety Report 25519910 (Version 1)
Quarter: 2025Q3

REPORT INFORMATION
  Report Type: Spontaneous
  Country: US (occurrence: US)
  Receive Date: 20250704
  Receipt Date: 20250704
  Transmission Date: 20251021
  Serious: No
  Sender: SANOFI AVENTIS
  Company Number: US-SA-2025SA187648

PATIENT
  Sex: Male

DRUGS (5)
  1. DUPIXENT [Suspect]
     Active Substance: DUPILUMAB
     Indication: Dermatitis atopic
     Dosage: 300 MG, QOW
     Route: 058
  2. FERROUS SULFATE [Concomitant]
     Active Substance: FERROUS SULFATE
  3. TAMSULOSIN [Concomitant]
     Active Substance: TAMSULOSIN
  4. TRAVOPROST [Concomitant]
     Active Substance: TRAVOPROST
  5. CHLOROXINE\TRIAMCINOLONE ACETONIDE [Concomitant]
     Active Substance: CHLOROXINE\TRIAMCINOLONE ACETONIDE

REACTIONS (2)
  - Blood sodium decreased [Unknown]
  - Peripheral swelling [Unknown]

NARRATIVE: CASE EVENT DATE: 20250101
